FAERS Safety Report 9531442 (Version 1)
Quarter: 2013Q3

REPORT INFORMATION
  Report Type: Spontaneous
  Country: GB (occurrence: None)
  Receive Date: 20130916
  Receipt Date: 20130916
  Transmission Date: 20140515
  Serious: Yes (Life-Threatening, Hospitalization, Other)
  Sender: FDA-Public Use
  Company Number: 2013AP007972

PATIENT
  Age: 84 Year
  Sex: Female

DRUGS (5)
  1. ALENDRONIC ACID (ALENDRONIC ACID) [Suspect]
     Route: 048
  2. LEVOTHYROXINE SODIUM (LEVOTHYROXINE SODIUM) [Concomitant]
  3. WARFARIN (WARFARIN) [Concomitant]
  4. DIGOXIN (DIGOXIN) [Concomitant]
  5. GLUCOSAMINE (GLUCOSAMINE) [Concomitant]

REACTIONS (4)
  - Oesophageal perforation [None]
  - Pleural effusion [None]
  - Pneumonia [None]
  - Respiratory failure [None]
